FAERS Safety Report 7100093-7 (Version None)
Quarter: 2010Q4

REPORT INFORMATION
  Report Type: 
  Country: None (occurrence: None)
  Receive Date: 20101112
  Receipt Date: 20091124
  Transmission Date: 20110411
  Serious: No
  Sender: FDA-Public Use
  Company Number: A0826665A

PATIENT
  Sex: Female

DRUGS (2)
  1. CARVEDILOL [Suspect]
     Route: 048
  2. COREG CR [Suspect]
     Route: 048

REACTIONS (1)
  - EJECTION FRACTION DECREASED [None]
